FAERS Safety Report 13657149 (Version 4)
Quarter: 2017Q4

REPORT INFORMATION
  Report Type: Spontaneous
  Country: JP (occurrence: JP)
  Receive Date: 20170615
  Receipt Date: 20171017
  Transmission Date: 20180320
  Serious: Yes (Disabling, Other)
  Sender: FDA-Public Use
  Company Number: JP-BAUSCH-BL-2017-018980

PATIENT
  Age: 88 Year
  Sex: Male
  Weight: 64.06 kg

DRUGS (6)
  1. VISUDYNE [Suspect]
     Active Substance: VERTEPORFIN
     Indication: AGE-RELATED MACULAR DEGENERATION
  2. LUCENTIS [Suspect]
     Active Substance: RANIBIZUMAB
     Indication: MACULAR DEGENERATION
     Route: 050
     Dates: start: 20120208, end: 20120208
  3. TRIAMCINOLONE ACETONIDE. [Suspect]
     Active Substance: TRIAMCINOLONE ACETONIDE
     Indication: MACULAR DEGENERATION
     Route: 056
     Dates: start: 20120208, end: 20120208
  4. TRIAMCINOLONE ACETONIDE. [Suspect]
     Active Substance: TRIAMCINOLONE ACETONIDE
     Indication: AGE-RELATED MACULAR DEGENERATION
  5. LUCENTIS [Suspect]
     Active Substance: RANIBIZUMAB
     Indication: AGE-RELATED MACULAR DEGENERATION
  6. VISUDYNE [Suspect]
     Active Substance: VERTEPORFIN
     Indication: MACULAR DEGENERATION
     Route: 042
     Dates: start: 20120209, end: 20120209

REACTIONS (5)
  - Subretinal fluid [Unknown]
  - Subretinal fibrosis [Recovered/Resolved]
  - Macular degeneration [Recovering/Resolving]
  - Age-related macular degeneration [Recovering/Resolving]
  - Retinal pigment epithelial tear [Recovered/Resolved with Sequelae]

NARRATIVE: CASE EVENT DATE: 20120216
